FAERS Safety Report 10210604 (Version 1)
Quarter: 2014Q2

REPORT INFORMATION
  Report Type: Spontaneous
  Country: US (occurrence: None)
  Receive Date: 20140528
  Receipt Date: 20140528
  Transmission Date: 20141212
  Serious: Yes (Death)
  Sender: FDA-Public Use
  Company Number: ADR-2014-00885

PATIENT
  Age: 65 Year
  Sex: Female

DRUGS (3)
  1. COMPOUNDED BACLOFEN INTRATHECAL [Suspect]
     Dosage: /DAY
  2. DILAUDID INTRATHECAL [Suspect]
     Dosage: /DAY
  3. BUPIVACAINE [Suspect]

REACTIONS (2)
  - Cervix carcinoma [None]
  - Malignant neoplasm progression [None]
